FAERS Safety Report 14338498 (Version 10)
Quarter: 2025Q3

REPORT INFORMATION
  Report Type: Spontaneous
  Country: EU (occurrence: EU)
  Receive Date: 20171229
  Receipt Date: 20250809
  Transmission Date: 20251020
  Serious: Yes (Hospitalization, Other)
  Sender: TEVA
  Company Number: None

PATIENT
  Age: 58 Year
  Sex: Female

DRUGS (25)
  1. VENLAFAXINE [Suspect]
     Active Substance: VENLAFAXINE HYDROCHLORIDE
     Indication: Depression
     Dosage: UNK
     Route: 048
     Dates: start: 20161229
  2. VENLAFAXINE [Suspect]
     Active Substance: VENLAFAXINE HYDROCHLORIDE
     Indication: Depression
     Dosage: 1X/DAY
     Route: 048
     Dates: start: 20161128
  3. VENLAFAXINE [Suspect]
     Active Substance: VENLAFAXINE HYDROCHLORIDE
     Indication: Depression
     Dosage: 1X/DAY; VENLAFAXINE HCL
     Route: 048
     Dates: start: 20160907
  4. LACTULOSE [Concomitant]
     Active Substance: LACTULOSE
     Indication: Constipation
     Dosage: 1.00 SPOON TID
     Route: 048
     Dates: start: 20160928
  5. LACTULOSE [Concomitant]
     Active Substance: LACTULOSE
     Indication: Constipation
     Dosage: DOSAGE TEXT: 1.00 SPOON TID
     Route: 048
     Dates: start: 20160928
  6. NYSTATIN [Concomitant]
     Active Substance: NYSTATIN
     Indication: Mucosal inflammation
     Dosage: 6.00 ML QID
     Route: 048
     Dates: start: 20161117
  7. MIRTAZAPINE [Concomitant]
     Active Substance: MIRTAZAPINE
     Indication: Depression
     Dosage: 30.00 MG QD
     Route: 048
     Dates: start: 20160907
  8. SENE [Concomitant]
     Indication: Constipation
     Dosage: 2.00 CAPSULE QD
     Route: 048
     Dates: start: 20160928
  9. METHIMAZOLE [Concomitant]
     Active Substance: METHIMAZOLE
     Indication: Thyroid cyst
     Dosage: 5.00 MG QD
     Route: 048
     Dates: start: 20160907
  10. BISACODYL [Concomitant]
     Active Substance: BISACODYL
     Indication: Constipation
     Dosage: 2.00 CAPSULE QD
     Route: 048
     Dates: start: 20160928
  11. MORPHINE SULFATE [Concomitant]
     Active Substance: MORPHINE SULFATE
     Indication: Pain
     Route: 048
     Dates: start: 20160928
  12. MORPHINE SULFATE [Concomitant]
     Active Substance: MORPHINE SULFATE
     Indication: Pain
     Route: 048
     Dates: start: 20161104
  13. PANTOPRAZOLE [Concomitant]
     Active Substance: PANTOPRAZOLE
     Indication: Prophylaxis
     Dosage: 40.00 MG QD
     Route: 048
     Dates: start: 20160928
  14. METHYLPREDNISOLONE [Concomitant]
     Active Substance: METHYLPREDNISOLONE
     Indication: Pain
     Dosage: 0.50 CAPSULE QD
     Route: 048
     Dates: start: 20161021
  15. AMITRIPTYLINE HYDROCHLORIDE [Concomitant]
     Active Substance: AMITRIPTYLINE HYDROCHLORIDE
     Indication: Depression
     Dosage: 25.00 MG BID
     Route: 048
     Dates: start: 20160928
  16. AMITRIPTYLINE HYDROCHLORIDE [Concomitant]
     Active Substance: AMITRIPTYLINE HYDROCHLORIDE
     Indication: Depression
     Dosage: 25.00 MG BID
     Route: 048
     Dates: start: 20160928
  17. TREMELIMUMAB [Suspect]
     Active Substance: TREMELIMUMAB
     Indication: Non-small cell lung cancer
     Route: 042
     Dates: start: 20161104, end: 20161104
  18. TREMELIMUMAB [Suspect]
     Active Substance: TREMELIMUMAB
     Indication: Non-small cell lung cancer
     Route: 042
     Dates: start: 20161130, end: 20161130
  19. GABAPENTIN [Concomitant]
     Active Substance: GABAPENTIN
     Indication: Pain
     Dosage: TID
     Route: 048
     Dates: start: 20160928
  20. GABAPENTIN [Concomitant]
     Active Substance: GABAPENTIN
     Indication: Pain
     Dosage: 400.00 MG TID
     Route: 048
     Dates: start: 20160928
  21. SODIUM LAURYL SULFOACETATE [Concomitant]
     Active Substance: SODIUM LAURYL SULFOACETATE
     Indication: Constipation
     Route: 054
     Dates: start: 20160928
  22. SODIUM LAURYL SULFOACETATE [Concomitant]
     Active Substance: SODIUM LAURYL SULFOACETATE
     Indication: Constipation
     Route: 054
     Dates: start: 20160928
  23. FENTANYL [Concomitant]
     Active Substance: FENTANYL
     Indication: Pain
     Route: 003
     Dates: start: 20160928
  24. FENTANYL [Concomitant]
     Active Substance: FENTANYL
     Indication: Pain
     Route: 003
     Dates: start: 20160928
  25. CLOBAZAM [Concomitant]
     Active Substance: CLOBAZAM
     Indication: Depression
     Route: 048
     Dates: start: 20160907

REACTIONS (1)
  - Drug-induced liver injury [Recovering/Resolving]

NARRATIVE: CASE EVENT DATE: 20161229
